FAERS Safety Report 7744188-3 (Version None)
Quarter: 2011Q3

REPORT INFORMATION
  Report Type: 
  Country: None (occurrence: None)
  Receive Date: 20110819
  Receipt Date: 20110625
  Transmission Date: 20111222
  Serious: No
  Sender: FDA-Public Use
  Company Number: 036072

PATIENT
  Age: 19 Year

DRUGS (2)
  1. LACOSAMIDE [Suspect]
     Indication: JUVENILE MYOCLONIC EPILEPSY
     Dosage: (200 MG BID)
  2. VALPROIC ACID [Concomitant]

REACTIONS (1)
  - ELECTROCARDIOGRAM ST-T CHANGE [None]
